FAERS Safety Report 17374443 (Version 1)
Quarter: 2020Q1

REPORT INFORMATION
  Report Type: Spontaneous
  Country: DK (occurrence: DK)
  Receive Date: 20200205
  Receipt Date: 20200205
  Transmission Date: 20200409
  Serious: Yes (Hospitalization)
  Sender: FDA-Public Use
  Company Number: NVSC2020DK023874

PATIENT
  Age: 78 Year
  Sex: Male

DRUGS (13)
  1. AMLODIPINE [Concomitant]
     Active Substance: AMLODIPINE BESYLATE
     Indication: HYPERTENSION
     Dosage: 10 MG, QD (STYRKE 10 MG)
     Route: 048
     Dates: start: 20180628
  2. LANSOPRAZOLE. [Concomitant]
     Active Substance: LANSOPRAZOLE
     Indication: GASTROOESOPHAGEAL REFLUX DISEASE
     Dosage: 30 MG, QD (STYRKE: 30 MG)
     Route: 048
     Dates: start: 20170915
  3. MOMETASONE FUROATE. [Concomitant]
     Active Substance: MOMETASONE FUROATE
     Indication: SINUSITIS
     Dosage: 100 UG, QD (STYRKE: 50 MIKROGRAM/DOSIS)
     Route: 045
     Dates: start: 20180124
  4. XERODENT [Concomitant]
     Indication: DRY MOUTH
     Dosage: 0.25 MG, QD (STYRKE 0.25 MG)
     Route: 048
     Dates: start: 20150602
  5. METOPROLOL. [Concomitant]
     Active Substance: METOPROLOL
     Indication: HEART RATE IRREGULAR
     Dosage: UNK (STYRKE 50 MG DOSIS VARIATION)
     Route: 048
     Dates: start: 20181123
  6. HYRIMOZ [Suspect]
     Active Substance: ADALIMUMAB-ADAZ
     Indication: RHEUMATOID ARTHRITIS
     Dosage: 40 MG, BIW (STYRKE 40 MG)
     Route: 058
     Dates: start: 20191004
  7. METHOTREXATE. [Concomitant]
     Active Substance: METHOTREXATE
     Indication: RHEUMATOID ARTHRITIS
     Dosage: 0.45 ML, QW (STYRKE 20 MG)
     Route: 058
     Dates: start: 20170329
  8. TADALAFIL. [Concomitant]
     Active Substance: TADALAFIL
     Indication: ERECTILE DYSFUNCTION
     Dosage: 20 MG (STYRKE 20 MG.DOSIS: HOJST EN GANG DAGLIG)
     Route: 048
     Dates: start: 20160212
  9. KETOROLAC [Concomitant]
     Active Substance: KETOROLAC TROMETHAMINE
     Indication: PRODUCT USED FOR UNKNOWN INDICATION
     Dosage: UNK (STYRKE: 30 MG/ML)
     Route: 030
  10. FESOTERODINE [Concomitant]
     Active Substance: FESOTERODINE
     Indication: HYPERTONIC BLADDER
     Dosage: 8 MG, QD (STYRKE: 8 MG)
     Route: 048
     Dates: start: 20191025
  11. ATORVASTATIN [Concomitant]
     Active Substance: ATORVASTATIN
     Indication: BLOOD CHOLESTEROL INCREASED
     Dosage: 40 MG, QD (STYRKE: 40 MG)
     Route: 048
     Dates: start: 20170915
  12. CLOPIDOGREL [Concomitant]
     Active Substance: CLOPIDOGREL BISULFATE
     Indication: THROMBOSIS PROPHYLAXIS
     Dosage: 75 MG, QD (STYRKE: 75 MG)
     Route: 048
     Dates: start: 20180903
  13. FOLIC ACID. [Concomitant]
     Active Substance: FOLIC ACID
     Indication: ADVERSE DRUG REACTION
     Dosage: 10 MG, QW (STYRKE : 5 MG)
     Route: 048
     Dates: start: 20160331

REACTIONS (4)
  - Lung infiltration [Recovering/Resolving]
  - Pneumonia [Recovering/Resolving]
  - Cough [Recovering/Resolving]
  - C-reactive protein increased [Recovering/Resolving]

NARRATIVE: CASE EVENT DATE: 20191028
